FAERS Safety Report 11132536 (Version 1)
Quarter: 2015Q2

REPORT INFORMATION
  Report Type: Spontaneous
  Country: US (occurrence: US)
  Receive Date: 20150522
  Receipt Date: 20150522
  Transmission Date: 20150821
  Serious: Yes (Other)
  Sender: FDA-Public Use
  Company Number: US-RECKITT BENCKISER PHARMACEUTICAL, INC-RB-079400-2015

PATIENT
  Age: 29 Year
  Sex: Female

DRUGS (1)
  1. BUPRENORPHINE [Suspect]
     Active Substance: BUPRENORPHINE
     Indication: SELF INJURIOUS BEHAVIOUR
     Dosage: TITRATED UP TO 2 MG TWICE DAILY
     Route: 065

REACTIONS (5)
  - Product use issue [Unknown]
  - Mood altered [Unknown]
  - Off label use [Unknown]
  - Self injurious behaviour [Unknown]
  - Hallucination [Unknown]
